FAERS Safety Report 15324125 (Version 1)
Quarter: 2018Q3

REPORT INFORMATION
  Report Type: Spontaneous
  Country: DE (occurrence: DE)
  Receive Date: 20180828
  Receipt Date: 20180828
  Transmission Date: 20181010
  Serious: Yes (Death, Life-Threatening, Hospitalization, Other)
  Sender: FDA-Public Use
  Company Number: DE-TEVA-2018-DE-947871

PATIENT
  Age: 68 Year
  Sex: Male

DRUGS (3)
  1. REVLIMID [Suspect]
     Active Substance: LENALIDOMIDE
     Indication: PLASMACYTOMA
     Dosage: 3XWOCHE, 1XWOCHE, BREAK
     Route: 048
     Dates: start: 201804, end: 201805
  2. DEXAMETHASONE. [Suspect]
     Active Substance: DEXAMETHASONE
     Indication: PLASMACYTOMA
     Dosage: DAY 1 + 2 WEEKLY
     Route: 048
     Dates: start: 201804, end: 201805
  3. DARZALEX [Suspect]
     Active Substance: DARATUMUMAB
     Indication: PLASMACYTOMA
     Dosage: DOSING SCHEDULE WEEKLY / EVERY TWO WEEKS / EVERY 4 WEEKS
     Route: 040
     Dates: start: 201804

REACTIONS (2)
  - Multiple organ dysfunction syndrome [Not Recovered/Not Resolved]
  - Sepsis [Fatal]

NARRATIVE: CASE EVENT DATE: 20180526
